FAERS Safety Report 8980247 (Version 1)
Quarter: 2012Q4

REPORT INFORMATION
  Report Type: 
  Country: NL (occurrence: NL)
  Receive Date: 20121221
  Receipt Date: 20121221
  Transmission Date: 20130627
  Serious: Yes (Hospitalization)
  Sender: FDA-Public Use
  Company Number: PHHY2012NL115520

PATIENT
  Age: 80 Year
  Sex: Female

DRUGS (3)
  1. ZOMETA [Suspect]
     Indication: METASTATIC NEOPLASM
     Dosage: 4 mg/100ml once per 28 days
     Route: 042
  2. ZOMETA [Suspect]
     Dosage: 4 mg/100ml once per 28 days
     Route: 042
     Dates: start: 20120329
  3. ZOMETA [Suspect]
     Dosage: 4 mg/100ml one per 28 days
     Route: 042
     Dates: start: 20121213

REACTIONS (2)
  - Hernia [Recovering/Resolving]
  - Neck pain [Recovering/Resolving]
